FAERS Safety Report 25841240 (Version 1)
Quarter: 2025Q3

REPORT INFORMATION
  Report Type: Spontaneous
  Country: JP (occurrence: JP)
  Receive Date: 20250924
  Receipt Date: 20250924
  Transmission Date: 20251021
  Serious: Yes (Life-Threatening, Hospitalization, Other)
  Sender: GRANULES PHARMACEUTICALS INC
  Company Number: JP-GRANULES-JP-2025GRALIT00531

PATIENT
  Age: 20 Year
  Sex: Female

DRUGS (2)
  1. LAMOTRIGINE [Suspect]
     Active Substance: LAMOTRIGINE
     Indication: Product used for unknown indication
     Route: 048
  2. REBAMIPIDE [Concomitant]
     Active Substance: REBAMIPIDE
     Indication: Product used for unknown indication
     Route: 065

REACTIONS (11)
  - Electrocardiogram QRS complex prolonged [Recovered/Resolved]
  - Hypokalaemia [Recovered/Resolved]
  - Toxicity to various agents [Recovered/Resolved]
  - Hypernatraemia [Recovered/Resolved]
  - Sinus tachycardia [Recovered/Resolved]
  - Altered state of consciousness [Recovered/Resolved]
  - Metabolic acidosis [Recovered/Resolved]
  - Unresponsive to stimuli [Recovered/Resolved]
  - Status epilepticus [Recovered/Resolved]
  - Vomiting [Recovered/Resolved]
  - Intentional overdose [Unknown]
